FAERS Safety Report 6232504-3 (Version None)
Quarter: 2009Q2

REPORT INFORMATION
  Report Type: 
  Country: None (occurrence: None)
  Receive Date: 20090617
  Receipt Date: 20090609
  Transmission Date: 20091009
  Serious: Yes (Hospitalization)
  Sender: FDA-Public Use
  Company Number: JP-BAYER-200911928BYL

PATIENT
  Age: 59 Year
  Sex: Male
  Weight: 72 kg

DRUGS (20)
  1. CIPROXAN-I.V. [Suspect]
     Indication: PNEUMONIA
     Dosage: TOTAL DAILY DOSE: 150 MG
     Route: 041
     Dates: start: 20090420, end: 20090420
  2. CIPROXAN-I.V. [Suspect]
     Dosage: TOTAL DAILY DOSE: 600 MG
     Route: 041
     Dates: start: 20090421, end: 20090421
  3. ROZECLART [Concomitant]
     Indication: PNEUMONIA
     Dosage: TOTAL DAILY DOSE: 1 G
     Route: 042
     Dates: start: 20090417, end: 20090417
  4. ROZECLART [Concomitant]
     Dosage: TOTAL DAILY DOSE: 2 G
     Route: 042
     Dates: start: 20090418, end: 20090420
  5. PL [Concomitant]
     Route: 048
     Dates: start: 20090421, end: 20090422
  6. AMLODIN OD [Concomitant]
     Dosage: TOTAL DAILY DOSE: 5 MG
     Route: 048
     Dates: start: 20090417, end: 20090422
  7. SIGMART [Concomitant]
     Dosage: TOTAL DAILY DOSE: 15 MG
     Route: 048
     Dates: start: 20090417
  8. DIOVAN [Concomitant]
     Dosage: TOTAL DAILY DOSE: 80 MG
     Route: 048
     Dates: start: 20090417
  9. WARFARIN SODIUM [Concomitant]
     Dosage: TOTAL DAILY DOSE: 1 MG
     Route: 048
     Dates: start: 20090423
  10. KAKODIN-D [Concomitant]
     Dosage: TOTAL DAILY DOSE: 200 ML
     Route: 042
     Dates: start: 20090422
  11. RADICUT [Concomitant]
     Dosage: TOTAL DAILY DOSE: 60 MG
     Route: 042
     Dates: start: 20090423
  12. LASIX [Concomitant]
     Dosage: TOTAL DAILY DOSE: 2 ML
     Route: 065
     Dates: start: 20090423
  13. SOL-MELCORT [Concomitant]
     Route: 042
     Dates: start: 20090424
  14. SOL-MELCORT [Concomitant]
     Route: 042
     Dates: start: 20090421, end: 20090423
  15. GASTER [Concomitant]
     Dosage: TOTAL DAILY DOSE: 40 MG
     Route: 042
     Dates: start: 20090421
  16. SOLDEM 3AG [Concomitant]
     Dosage: TOTAL DAILY DOSE: 500 ML
     Route: 042
     Dates: start: 20090425
  17. SEISHOKU [Concomitant]
     Dosage: TOTAL DAILY DOSE: 500 ML
     Route: 042
     Dates: start: 20090422, end: 20090422
  18. NOVO HEPARIN [Concomitant]
     Dosage: TOTAL DAILY DOSE: 10 ML
     Route: 042
     Dates: start: 20090422, end: 20090501
  19. BICARBON [Concomitant]
     Route: 042
     Dates: start: 20090422, end: 20090422
  20. HUMULIN R [Concomitant]
     Route: 058
     Dates: start: 20090417

REACTIONS (2)
  - CARDIAC FAILURE CONGESTIVE [None]
  - CEREBRAL INFARCTION [None]
